FAERS Safety Report 24912307 (Version 11)
Quarter: 2025Q4

REPORT INFORMATION
  Report Type: Spontaneous
  Country: EU (occurrence: None)
  Receive Date: 20250131
  Receipt Date: 20251231
  Transmission Date: 20260117
  Serious: Yes (Other)
  Sender: AMERICAN REGENT
  Company Number: EU-AMERICAN REGENT INC-2025000345

PATIENT
  Sex: Male
  Weight: 2.49 kg

DRUGS (47)
  1. FERINJECT [Suspect]
     Active Substance: FERRIC CARBOXYMALTOSE
     Indication: Product used for unknown indication
     Dosage: 1000 MILLIGRAM
  2. FERINJECT [Suspect]
     Active Substance: FERRIC CARBOXYMALTOSE
     Dosage: 1000 MILLIGRAM
  3. FERINJECT [Suspect]
     Active Substance: FERRIC CARBOXYMALTOSE
     Dosage: 1000 MILLIGRAM
  4. FERINJECT [Suspect]
     Active Substance: FERRIC CARBOXYMALTOSE
     Dosage: 1000 MILLIGRAM
  5. FERINJECT [Suspect]
     Active Substance: FERRIC CARBOXYMALTOSE
     Dosage: 1000 MILLIGRAM
  6. FERINJECT [Suspect]
     Active Substance: FERRIC CARBOXYMALTOSE
     Dosage: 1000 MILLIGRAM
  7. FERINJECT [Suspect]
     Active Substance: FERRIC CARBOXYMALTOSE
     Dosage: 1000 MILLIGRAM
  8. FERINJECT [Suspect]
     Active Substance: FERRIC CARBOXYMALTOSE
     Dosage: 1000 MILLIGRAM
  9. FERINJECT [Suspect]
     Active Substance: FERRIC CARBOXYMALTOSE
     Dosage: 1000 MILLIGRAM
  10. FERINJECT [Suspect]
     Active Substance: FERRIC CARBOXYMALTOSE
     Dosage: 1000 MILLIGRAM
  11. FERINJECT [Suspect]
     Active Substance: FERRIC CARBOXYMALTOSE
     Dosage: 1000 MILLIGRAM
  12. IMIPENEM [Suspect]
     Active Substance: IMIPENEM
     Indication: Pyrexia
     Dosage: UNK
  13. IMIPENEM [Suspect]
     Active Substance: IMIPENEM
     Dosage: UNK
  14. IMIPENEM [Suspect]
     Active Substance: IMIPENEM
     Dosage: UNK
  15. IMIPENEM [Suspect]
     Active Substance: IMIPENEM
     Dosage: UNK
  16. IMIPENEM [Suspect]
     Active Substance: IMIPENEM
     Dosage: UNK
     Route: 065
  17. IMIPENEM [Suspect]
     Active Substance: IMIPENEM
     Dosage: UNK
     Route: 065
  18. IMIPENEM [Suspect]
     Active Substance: IMIPENEM
     Dosage: UNK
     Route: 065
  19. IMIPENEM [Suspect]
     Active Substance: IMIPENEM
     Dosage: UNK
     Route: 065
  20. IMIPENEM [Suspect]
     Active Substance: IMIPENEM
     Dosage: UNK
     Route: 065
  21. IMIPENEM [Suspect]
     Active Substance: IMIPENEM
     Dosage: UNK
     Route: 065
  22. IMIPENEM [Suspect]
     Active Substance: IMIPENEM
     Dosage: UNK
     Route: 065
  23. IMIPENEM [Suspect]
     Active Substance: IMIPENEM
     Dosage: UNK
     Route: 065
  24. IMIPENEM [Suspect]
     Active Substance: IMIPENEM
     Dosage: UNK
     Route: 065
  25. IMIPENEM [Suspect]
     Active Substance: IMIPENEM
     Dosage: UNK
     Route: 065
  26. IMIPENEM [Suspect]
     Active Substance: IMIPENEM
     Dosage: UNK
     Route: 065
  27. IMIPENEM [Suspect]
     Active Substance: IMIPENEM
     Dosage: UNK
     Route: 065
  28. IMIPENEM [Suspect]
     Active Substance: IMIPENEM
     Dosage: UNK
     Route: 065
  29. IMIPENEM [Suspect]
     Active Substance: IMIPENEM
     Dosage: UNK
     Route: 065
  30. IMIPENEM [Suspect]
     Active Substance: IMIPENEM
     Dosage: UNK
     Route: 065
  31. IMIPENEM [Suspect]
     Active Substance: IMIPENEM
     Dosage: UNK
     Route: 065
  32. IMIPENEM [Suspect]
     Active Substance: IMIPENEM
     Dosage: UNK
     Route: 065
  33. IMIPENEM [Suspect]
     Active Substance: IMIPENEM
     Dosage: UNK
     Route: 065
  34. IMIPENEM [Suspect]
     Active Substance: IMIPENEM
     Dosage: UNK
     Route: 065
  35. IMIPENEM [Suspect]
     Active Substance: IMIPENEM
     Dosage: UNK
     Route: 065
  36. IMIPENEM [Suspect]
     Active Substance: IMIPENEM
     Dosage: UNK
     Route: 065
  37. IMIPENEM [Suspect]
     Active Substance: IMIPENEM
     Dosage: UNK
     Route: 065
  38. IMIPENEM [Suspect]
     Active Substance: IMIPENEM
     Dosage: UNK
     Route: 065
  39. IMIPENEM [Suspect]
     Active Substance: IMIPENEM
     Dosage: UNK
     Route: 065
  40. IMIPENEM [Suspect]
     Active Substance: IMIPENEM
     Dosage: UNK
     Route: 065
  41. IMIPENEM [Suspect]
     Active Substance: IMIPENEM
     Dosage: UNK
     Route: 065
  42. GENTAMICIN SULFATE [Suspect]
     Active Substance: GENTAMICIN SULFATE
     Indication: Product used for unknown indication
     Dosage: 80 MILLIGRAM, EVERY 6 H
  43. AMPICILLIN [Suspect]
     Active Substance: AMPICILLIN
     Indication: Product used for unknown indication
     Dosage: 1.5 GRAM EVERY 6 HRS
  44. AMPICILLIN [Suspect]
     Active Substance: AMPICILLIN
     Dosage: 3 GRAM EVERY 6 HRS
  45. ACETAMINOPHEN [Suspect]
     Active Substance: ACETAMINOPHEN
     Indication: Pyrexia
     Dosage: UNK
  46. ACETAMINOPHEN [Suspect]
     Active Substance: ACETAMINOPHEN
     Dosage: UNK
  47. ACETAMINOPHEN [Suspect]
     Active Substance: ACETAMINOPHEN
     Indication: Pyrexia
     Dosage: STRENGTH: 500 MILLIGRAM

REACTIONS (9)
  - Neonatal respiratory distress syndrome [Recovered/Resolved]
  - Opisthotonus [Recovered/Resolved]
  - Premature baby [Unknown]
  - General physical health deterioration [Recovered/Resolved]
  - Irritability [Recovered/Resolved]
  - Vasculitis [Recovered/Resolved]
  - Atrial septal defect [Recovered/Resolved]
  - Atrial septal defect [Recovered/Resolved]
  - Foetal exposure during pregnancy [Unknown]
